FAERS Safety Report 8238898-1 (Version None)
Quarter: 2012Q1

REPORT INFORMATION
  Report Type: 
  Country: None (occurrence: None)
  Receive Date: 20120327
  Receipt Date: 20120319
  Transmission Date: 20120608
  Serious: Yes (Hospitalization, Other)
  Sender: FDA-Public Use
  Company Number: FR-ASTRAZENECA-2012SE18985

PATIENT
  Age: 48 Year
  Sex: Male

DRUGS (5)
  1. TENORMIN [Suspect]
     Route: 048
     Dates: start: 20110201
  2. NEXIUM [Suspect]
     Route: 048
     Dates: start: 20110301
  3. MYCOPHENOLATE MOFETIL (CELLCEPT) [Concomitant]
     Indication: IMMUNOSUPPRESSION
  4. RAPAMUNE [Suspect]
     Indication: IMMUNOSUPPRESSION
     Route: 048
     Dates: start: 20110622
  5. MYFORTIC [Suspect]
     Indication: IMMUNOSUPPRESSION
     Route: 048
     Dates: start: 20110823

REACTIONS (2)
  - INTERSTITIAL LUNG DISEASE [None]
  - LUNG INFECTION [None]
